FAERS Safety Report 5767287-4 (Version None)
Quarter: 2008Q2

REPORT INFORMATION
  Report Type: 
  Country: None (occurrence: None)
  Receive Date: 20080612
  Receipt Date: 20080602
  Transmission Date: 20081010
  Serious: Yes (Other)
  Sender: FDA-Public Use
  Company Number: ES-ELI_LILLY_AND_COMPANY-ES200806001174

PATIENT
  Age: 80 Year
  Sex: Female

DRUGS (5)
  1. FORTEO [Suspect]
     Indication: OSTEOPOROSIS
     Dosage: 20 UG, DAILY (1/D)
     Route: 058
     Dates: start: 20071201, end: 20080123
  2. AMERIDE [Concomitant]
     Dosage: 50 MG, UNKNOWN
     Route: 048
  3. CALCIUM SANDOZ [Concomitant]
     Indication: OSTEOPOROSIS
     Dosage: UNK, UNKNOWN
     Route: 065
  4. SERETIDE [Concomitant]
     Dosage: 250 UG, UNKNOWN
     Route: 055
  5. VENTOLIN                                /SCH/ [Concomitant]
     Dosage: UNK, UNKNOWN
     Route: 055

REACTIONS (2)
  - MUSCLE SPASMS [None]
  - MUSCULOSKELETAL PAIN [None]
